FAERS Safety Report 7550465 (Version 4)
Quarter: 2013Q3

REPORT INFORMATION
  Report Type: Spontaneous
  Country: DE (occurrence: DE)
  Receive Date: 20100823
  Receipt Date: 20130719
  Transmission Date: 20140515
  Serious: Yes (Death, Other)
  Sender: FDA-Public Use
  Company Number: DE-GENZYME-FABR-1001513

PATIENT
  Age: 45 Year
  Sex: Male
  Weight: 66.5 kg

DRUGS (28)
  1. FABRAZYME [Suspect]
     Indication: FABRY^S DISEASE
     Dosage: 1.05 MG/KG, Q2W
     Route: 042
     Dates: start: 20041125, end: 20100114
  2. FABRAZYME [Suspect]
     Dosage: 35 MG, Q3W
     Route: 042
     Dates: start: 20100216, end: 20100706
  3. FABRAZYME [Suspect]
     Dosage: 0.3 MG/KG, UNK
     Route: 042
  4. BISOPROLOL [Concomitant]
     Indication: HYPERTENSION
     Dosage: UNK
     Route: 065
  5. BISOPROLOL [Concomitant]
     Indication: CARDIAC DISORDER
  6. PLAVIX [Concomitant]
     Indication: HAEMODILUTION
     Dosage: UNK
     Route: 065
  7. SORTIS [Concomitant]
     Indication: DRUG THERAPY
     Dosage: 20 MG, QD
     Route: 065
  8. EINSALPHA [Concomitant]
     Indication: VITAMIN D
     Dosage: 1 MCG, QD
     Route: 065
  9. MIMPARA [Concomitant]
     Indication: DRUG THERAPY
     Dosage: 60 MG, QD
     Route: 065
  10. CPS [Concomitant]
     Indication: DRUG THERAPY
     Dosage: UNK
     Route: 065
  11. VITARENAL [Concomitant]
     Indication: VITAMIN SUPPLEMENTATION
     Dosage: UNK
     Route: 065
  12. LYRICA [Concomitant]
     Indication: NEURALGIA
     Dosage: 75 MG, QD
     Route: 065
  13. NOVAMINSULFON-1A PHARMA [Concomitant]
     Indication: PAIN
     Dosage: UNK
     Route: 065
  14. SPIRIVA [Concomitant]
     Indication: BRONCHIAL DISORDER
     Dosage: 18 MCG, QD
     Route: 065
  15. ANTI PHOSPHAT [Concomitant]
     Indication: DRUG THERAPY
     Dosage: UNK
     Route: 065
  16. PANTOPRAZOL AL [Concomitant]
     Indication: PRODUCT USED FOR UNKNOWN INDICATION
     Dosage: 40 MG, BID
     Route: 065
  17. MADOPAR [Concomitant]
     Indication: PRODUCT USED FOR UNKNOWN INDICATION
     Dosage: UNK
     Route: 065
  18. CIPRALEX [Concomitant]
     Indication: PRODUCT USED FOR UNKNOWN INDICATION
     Dosage: 10 MG, QD
     Route: 065
  19. REMERGIL [Concomitant]
     Indication: PRODUCT USED FOR UNKNOWN INDICATION
     Dosage: 30 MG, QD
     Route: 065
  20. ULCOGANT [Concomitant]
     Indication: PRODUCT USED FOR UNKNOWN INDICATION
     Dosage: UNK
     Route: 065
  21. JURNISTA [Concomitant]
     Indication: ANALGESIC THERAPY
     Dosage: UNK
     Route: 065
  22. LACTULOSE [Concomitant]
     Indication: CONSTIPATION
     Dosage: 10 ML, QD
     Route: 065
  23. PALLADON [Concomitant]
     Indication: PRODUCT USED FOR UNKNOWN INDICATION
     Dosage: UNK
     Route: 065
  24. NORFLEX [Concomitant]
     Indication: HAEMODIALYSIS
     Dosage: UNK
     Route: 065
  25. BICANORM [Concomitant]
     Indication: PRODUCT USED FOR UNKNOWN INDICATION
     Dosage: UNK
     Route: 065
  26. TAVEGIL [Concomitant]
     Indication: PRODUCT USED FOR UNKNOWN INDICATION
     Dosage: UNK
     Route: 065
  27. SOBELIN [Concomitant]
     Indication: PRODUCT USED FOR UNKNOWN INDICATION
     Dosage: 300 MG, QID
     Route: 065
     Dates: end: 20100620
  28. CIPROBAY [Concomitant]
     Indication: PRODUCT USED FOR UNKNOWN INDICATION
     Dosage: UNK
     Route: 065
     Dates: end: 20100620

REACTIONS (4)
  - Multi-organ disorder [Fatal]
  - Arterial stenosis [Not Recovered/Not Resolved]
  - Cardiac output decreased [Not Recovered/Not Resolved]
  - Respiratory failure [Fatal]
